FAERS Safety Report 12630191 (Version 2)
Quarter: 2016Q4

REPORT INFORMATION
  Report Type: Report from Study
  Country: CA (occurrence: CA)
  Receive Date: 20160808
  Receipt Date: 20161003
  Transmission Date: 20170207
  Serious: Yes (Other)
  Sender: FDA-Public Use
  Company Number: CA-JNJFOC-20160804542

PATIENT
  Age: 60 Year
  Sex: Male
  Weight: 118 kg

DRUGS (21)
  1. RAPAFLO [Concomitant]
     Active Substance: SILODOSIN
     Route: 065
  2. CLOPIDOGREL [Concomitant]
     Active Substance: CLOPIDOGREL BISULFATE
     Route: 065
  3. REMICADE [Suspect]
     Active Substance: INFLIXIMAB
     Indication: CROHN^S DISEASE
     Route: 042
     Dates: start: 20100512
  4. VITAMIN D [Concomitant]
     Active Substance: CHOLECALCIFEROL
     Dosage: 1000 (UNSPECIFIED DOSE)
     Route: 065
  5. NOVORAPID [Concomitant]
     Active Substance: INSULIN ASPART
     Route: 065
  6. PREGABALIN. [Concomitant]
     Active Substance: PREGABALIN
     Route: 065
  7. METOCLOPRAMIDE. [Concomitant]
     Active Substance: METOCLOPRAMIDE
     Route: 065
  8. BUPROPION. [Concomitant]
     Active Substance: BUPROPION
     Dosage: 100 MG (POSSIBLE) ONCE A DAY (POSSIBLE)
     Route: 065
  9. ACETAMINOPHEN. [Concomitant]
     Active Substance: ACETAMINOPHEN
     Route: 065
  10. SYNTHROID [Concomitant]
     Active Substance: LEVOTHYROXINE SODIUM
     Route: 065
  11. NIFEDIPINE. [Concomitant]
     Active Substance: NIFEDIPINE
     Route: 065
  12. PANTOLOC [Concomitant]
     Active Substance: PANTOPRAZOLE SODIUM
     Route: 065
  13. BISOPROLOL [Concomitant]
     Active Substance: BISOPROLOL
     Route: 065
  14. CITALOPRAM [Concomitant]
     Active Substance: CITALOPRAM HYDROBROMIDE
     Route: 065
  15. JANUMET [Concomitant]
     Active Substance: METFORMIN HYDROCHLORIDE\SITAGLIPTIN PHOSPHATE
     Dosage: 1000MG-50 MG
     Route: 065
  16. MEZAVANT [Concomitant]
     Active Substance: MESALAMINE
     Route: 065
  17. DILAUDID [Concomitant]
     Active Substance: HYDROMORPHONE HYDROCHLORIDE
     Route: 065
  18. SANDOZ VALSARTAN [Concomitant]
     Active Substance: VALSARTAN
     Route: 065
  19. TEVA ROSUVASTATIN [Concomitant]
     Route: 065
  20. MAGLUCATE [Concomitant]
     Route: 065
  21. NOVOLIN GE NPH [Concomitant]
     Active Substance: INSULIN BEEF
     Dosage: 28 (UNSPECIFIED UNIT)
     Route: 065

REACTIONS (3)
  - Abdominal pain [Unknown]
  - Diabetes mellitus [Recovering/Resolving]
  - Frequent bowel movements [Unknown]

NARRATIVE: CASE EVENT DATE: 201607
